FAERS Safety Report 17779691 (Version 3)
Quarter: 2020Q3

REPORT INFORMATION
  Report Type: Spontaneous
  Country: US (occurrence: US)
  Receive Date: 20200513
  Receipt Date: 20200720
  Transmission Date: 20201102
  Serious: No
  Sender: FDA-Public Use
  Company Number: US-SA-2020SA121015

PATIENT

DRUGS (1)
  1. LANTUS SOLOSTAR [Suspect]
     Active Substance: INSULIN GLARGINE
     Indication: TYPE 2 DIABETES MELLITUS
     Dosage: 40 IU, QD
     Route: 058

REACTIONS (5)
  - Injection site swelling [Unknown]
  - Device defective [Unknown]
  - Multiple use of single-use product [Unknown]
  - Injection site erythema [Unknown]
  - Injection site injury [Unknown]
